FAERS Safety Report 8885122 (Version 1)
Quarter: 2012Q4

REPORT INFORMATION
  Report Type: 
  Country: US (occurrence: US)
  Receive Date: 20121102
  Receipt Date: 20121102
  Transmission Date: 20130627
  Serious: No
  Sender: FDA-Public Use
  Company Number: US-PFIZER INC-2012273074

PATIENT
  Age: 65 Year
  Sex: Male
  Weight: 79.37 kg

DRUGS (5)
  1. CADUET [Suspect]
     Indication: HIGH CHOLESTEROL
     Dosage: [amlodipine besilate 5mg]/ [atorvastatin calcium 10mg], once daily
     Route: 048
     Dates: start: 2009
  2. CADUET [Suspect]
     Indication: BLOOD PRESSURE HIGH
  3. LOSARTAN [Concomitant]
     Dosage: 50 mg
  4. HYDROCHLOROTHIAZIDE [Concomitant]
     Dosage: 12.5 mg
  5. VITAMIN D [Concomitant]
     Dosage: UNK

REACTIONS (1)
  - Somnolence [Not Recovered/Not Resolved]
